FAERS Safety Report 7531182-0 (Version None)
Quarter: 2011Q2

REPORT INFORMATION
  Report Type: 
  Country: None (occurrence: None)
  Receive Date: 20110527
  Receipt Date: 20110525
  Transmission Date: 20111010
  Serious: Yes (Death)
  Sender: FDA-Public Use
  Company Number: 2011SP023996

PATIENT
  Age: 26 Year
  Sex: Female

DRUGS (1)
  1. NOXAFIL [Suspect]
     Indication: LUNG INFECTION

REACTIONS (6)
  - PRODUCTIVE COUGH [None]
  - DYSPNOEA [None]
  - PYREXIA [None]
  - CARDIAC ARREST [None]
  - SUDDEN DEATH [None]
  - CANDIDIASIS [None]
